FAERS Safety Report 19182671 (Version 5)
Quarter: 2022Q1

REPORT INFORMATION
  Report Type: Report from Study
  Country: US (occurrence: US)
  Receive Date: 20210427
  Receipt Date: 20220311
  Transmission Date: 20220423
  Serious: No
  Sender: FDA-Public Use
  Company Number: US-TAKEDA-2021TUS026262

PATIENT
  Age: 31 Year
  Sex: Female

DRUGS (3)
  1. BRIGATINIB [Suspect]
     Active Substance: BRIGATINIB
     Indication: Neurofibromatosis
     Dosage: 90 MILLIGRAM
     Route: 065
     Dates: start: 20210423
  2. BRIGATINIB [Suspect]
     Active Substance: BRIGATINIB
     Indication: Acoustic neuroma
     Dosage: 180 MILLIGRAM
     Route: 065
  3. BRIGATINIB [Suspect]
     Active Substance: BRIGATINIB
     Dosage: 90 MILLIGRAM
     Route: 065

REACTIONS (6)
  - Pancreatic enzymes increased [Unknown]
  - Dizziness [Unknown]
  - Nausea [Unknown]
  - Hypoacusis [Unknown]
  - Drug intolerance [Unknown]
  - Off label use [Unknown]

NARRATIVE: CASE EVENT DATE: 20210423
